FAERS Safety Report 7610728-8 (Version None)
Quarter: 2011Q3

REPORT INFORMATION
  Report Type: 
  Country: None (occurrence: None)
  Receive Date: 20110707
  Receipt Date: 20110622
  Transmission Date: 20111222
  Serious: Yes (Hospitalization)
  Sender: FDA-Public Use
  Company Number: 2011MA007932

PATIENT
  Age: 76 Year
  Sex: Female

DRUGS (6)
  1. SPIRONOLACTONE [Suspect]
     Indication: OEDEMA
     Dosage: 25 MG;
  2. HYDROCHLOROTHIAZIDE [Concomitant]
  3. ACETYLSALICYLIC ACID SRT [Concomitant]
  4. RAMIPRIL [Concomitant]
  5. ATORVASTATIN [Concomitant]
  6. CARVEDILOL [Concomitant]

REACTIONS (9)
  - NAUSEA [None]
  - LOSS OF CONSCIOUSNESS [None]
  - ABDOMINAL PAIN [None]
  - SYNCOPE [None]
  - DIARRHOEA [None]
  - BRADYCARDIA [None]
  - VOMITING [None]
  - DIZZINESS [None]
  - HYPERKALAEMIA [None]
